FAERS Safety Report 12235243 (Version 1)
Quarter: 2016Q2

REPORT INFORMATION
  Report Type: Spontaneous
  Country: US (occurrence: US)
  Receive Date: 20160404
  Receipt Date: 20160404
  Transmission Date: 20160815
  Serious: No
  Sender: FDA-Public Use
  Company Number: US-TARO-2015TAR00405

PATIENT
  Age: 73 Year
  Sex: Male
  Weight: 73.92 kg

DRUGS (3)
  1. FLUOROURACIL TOPICAL CREAM USP 5% [Suspect]
     Active Substance: FLUOROURACIL
     Indication: SOLAR DERMATITIS
     Dosage: 1 DOSAGE UNITS, 1X/DAY
     Route: 061
     Dates: start: 20150124, end: 20150128
  2. FLUOROURACIL TOPICAL CREAM USP 5% [Suspect]
     Active Substance: FLUOROURACIL
     Dosage: 1 DOSAGE UNITS, EVERY 48 HOURS
     Dates: start: 20150307, end: 2015
  3. PROPRANOLOL [Concomitant]
     Active Substance: PROPRANOLOL\PROPRANOLOL HYDROCHLORIDE
     Dosage: 20 MG, 1X/DAY

REACTIONS (7)
  - Eye swelling [Recovering/Resolving]
  - Skin irritation [Recovering/Resolving]
  - Therapy cessation [Recovered/Resolved]
  - Pruritus [Recovering/Resolving]
  - Skin discolouration [Not Recovered/Not Resolved]
  - Application site erythema [Recovering/Resolving]
  - Rash [Recovered/Resolved]

NARRATIVE: CASE EVENT DATE: 2015
